FAERS Safety Report 20749460 (Version 4)
Quarter: 2022Q3

REPORT INFORMATION
  Report Type: Report from Study
  Country: MX (occurrence: MX)
  Receive Date: 20220426
  Receipt Date: 20220922
  Transmission Date: 20221027
  Serious: Yes (Hospitalization, Disabling, Other)
  Sender: FDA-Public Use
  Company Number: MX-NOVARTISPH-NVSC2022MX058192

PATIENT
  Age: 40 Year
  Sex: Male

DRUGS (2)
  1. GILENYA [Suspect]
     Active Substance: FINGOLIMOD HYDROCHLORIDE
     Indication: Multiple sclerosis
     Dosage: 0.5 MG, EVERY 72 HOURS
     Route: 048
  2. GILENYA [Suspect]
     Active Substance: FINGOLIMOD HYDROCHLORIDE
     Dosage: 0.5 MG, QD
     Route: 048
     Dates: start: 202202, end: 20220407

REACTIONS (13)
  - Multiple sclerosis relapse [Not Recovered/Not Resolved]
  - Gait disturbance [Unknown]
  - Multiple sclerosis [Recovering/Resolving]
  - Movement disorder [Recovering/Resolving]
  - Dizziness [Recovering/Resolving]
  - Fatigue [Recovering/Resolving]
  - Fall [Unknown]
  - Immunodeficiency [Not Recovered/Not Resolved]
  - Tuberculosis [Unknown]
  - Insomnia [Unknown]
  - Ill-defined disorder [Unknown]
  - Pain [Unknown]
  - Inappropriate schedule of product administration [Unknown]

NARRATIVE: CASE EVENT DATE: 20220225
